FAERS Safety Report 7575494-3 (Version None)
Quarter: 2011Q2

REPORT INFORMATION
  Report Type: 
  Country: None (occurrence: None)
  Receive Date: 20110627
  Receipt Date: 20110616
  Transmission Date: 20111010
  Serious: Yes (Other)
  Sender: FDA-Public Use
  Company Number: PHHY2011GB53009

PATIENT
  Age: 24 Year
  Sex: Female
  Weight: 44.2 kg

DRUGS (16)
  1. CALCIUM CARBONATE [Concomitant]
     Dosage: UNK
  2. FERROUS SULFATE TAB [Concomitant]
     Dosage: 200 MG, UNK
  3. INSULIN GLARGINE [Concomitant]
  4. ALBUTEROL [Concomitant]
     Dosage: 200 UG, BID
  5. PULMOZYME [Concomitant]
  6. COLISTIN SULFATE [Concomitant]
  7. VITAMIN E [Concomitant]
  8. ERGOCALCIFEROL [Concomitant]
  9. FLUTICASONE PROPIONATE [Concomitant]
  10. MESALAMINE [Concomitant]
     Dosage: 500 MG, BID
  11. COLOMYCIN [Concomitant]
  12. CREON [Concomitant]
  13. SERETIDE ^ALLEN + HANBURYS LTD^ [Concomitant]
  14. MEROPENEM [Suspect]
     Indication: CYSTIC FIBROSIS
     Dosage: 2 G, TID
     Route: 042
     Dates: start: 20110428, end: 20110428
  15. OMEPRAZOLE [Concomitant]
     Dosage: 20 MG, QD
  16. VITAMIN A+D [Concomitant]

REACTIONS (4)
  - PRODUCT SUBSTITUTION ISSUE [None]
  - FEELING HOT [None]
  - NAUSEA [None]
  - RASH [None]
